FAERS Safety Report 24144249 (Version 1)
Quarter: 2024Q3

REPORT INFORMATION
  Report Type: Spontaneous
  Country: US (occurrence: US)
  Receive Date: 20240728
  Receipt Date: 20240728
  Transmission Date: 20241016
  Serious: No
  Sender: LUPIN
  Company Number: US-LUPIN PHARMACEUTICALS INC.-2024-06777

PATIENT

DRUGS (1)
  1. BUPROPION HYDROCHLORIDE [Suspect]
     Active Substance: BUPROPION HYDROCHLORIDE
     Indication: Product used for unknown indication
     Dosage: UNK
     Route: 065

REACTIONS (12)
  - Panic attack [Recovered/Resolved]
  - Somnolence [Recovered/Resolved]
  - Head discomfort [Recovered/Resolved]
  - Ear disorder [Recovered/Resolved]
  - Vision blurred [Recovered/Resolved]
  - Reflux laryngitis [Recovered/Resolved]
  - Influenza [Recovered/Resolved]
  - Migraine [Recovered/Resolved]
  - Yawning [Recovered/Resolved]
  - Apathy [Recovered/Resolved]
  - Adverse drug reaction [Unknown]
  - Drug intolerance [Unknown]
